FAERS Safety Report 25422104 (Version 1)
Quarter: 2025Q2

REPORT INFORMATION
  Report Type: Report from Study
  Country: US (occurrence: US)
  Receive Date: 20250611
  Receipt Date: 20250611
  Transmission Date: 20250716
  Serious: Yes (Other)
  Sender: ENDO
  Company Number: US-ENDO USA, INC.-2025-001340

PATIENT
  Age: 67 Year
  Sex: Female

DRUGS (4)
  1. PREDNISONE [Suspect]
     Active Substance: PREDNISONE
     Indication: Product used for unknown indication
     Route: 065
     Dates: start: 2013
  2. PREDNISONE [Suspect]
     Active Substance: PREDNISONE
     Route: 065
     Dates: start: 201910, end: 202009
  3. DUPIXENT [Suspect]
     Active Substance: DUPILUMAB
     Indication: Asthma
     Dosage: 600 MILLIGRAM, SINGLE (LOADING DOSE)
     Route: 058
     Dates: start: 20190423, end: 20190423
  4. DUPIXENT [Suspect]
     Active Substance: DUPILUMAB
     Dosage: 300 MILLIGRAM, BIWEEKLY (EVERY OTHER WEEK, MAINTENANCE DOSE)
     Route: 058
     Dates: start: 201905

REACTIONS (5)
  - Knee arthroplasty [Recovered/Resolved]
  - Spinal fusion surgery [Recovered/Resolved]
  - Foot fracture [Recovered/Resolved]
  - Osteoporotic fracture [Not Recovered/Not Resolved]
  - Eye disorder [Not Recovered/Not Resolved]

NARRATIVE: CASE EVENT DATE: 20190501
